FAERS Safety Report 7222611-0 (Version None)
Quarter: 2011Q1

REPORT INFORMATION
  Report Type: 
  Country: None (occurrence: None)
  Receive Date: 20110112
  Receipt Date: 20110105
  Transmission Date: 20110831
  Serious: No
  Sender: FDA-Public Use
  Company Number: US-PFIZER INC-2011006787

PATIENT
  Age: 2 Year
  Sex: Male
  Weight: 15 kg

DRUGS (1)
  1. CHILDREN'S ADVIL [Suspect]
     Dosage: 1 TEASPOONS
     Route: 048
     Dates: start: 20101219, end: 20101219

REACTIONS (1)
  - URTICARIA [None]
